FAERS Safety Report 21253515 (Version 1)
Quarter: 2022Q3

REPORT INFORMATION
  Report Type: Report from Study
  Country: US (occurrence: US)
  Receive Date: 20220825
  Receipt Date: 20220825
  Transmission Date: 20221026
  Serious: Yes (Other)
  Sender: FDA-Public Use
  Company Number: US-TAKEDA-2020TUS013042

PATIENT
  Age: 30 Year
  Sex: Female
  Weight: 66 kg

DRUGS (11)
  1. VEDOLIZUMAB [Suspect]
     Active Substance: VEDOLIZUMAB
     Indication: Crohn^s disease
     Dosage: 300 MILLIGRAM
     Route: 065
     Dates: start: 20160515, end: 20190322
  2. ZOLOFT [Concomitant]
     Active Substance: SERTRALINE HYDROCHLORIDE
     Indication: Bipolar disorder
     Dosage: 100 MILLIGRAM, QD
     Route: 048
     Dates: start: 20180908, end: 20190115
  3. ZOFRAN                             /00955301/ [Concomitant]
     Indication: Nausea
     Dosage: UNK UNK, QD
     Route: 048
     Dates: start: 20181227, end: 20190102
  4. ZOFRAN                             /00955301/ [Concomitant]
     Dosage: UNK UNK, QD
     Route: 048
     Dates: start: 20190103, end: 20190131
  5. VITAMIN B12 [Concomitant]
     Active Substance: CYANOCOBALAMIN
     Dosage: UNK UNK, QD
     Route: 058
     Dates: start: 20180908, end: 20190315
  6. VITAMIN B12 [Concomitant]
     Active Substance: CYANOCOBALAMIN
     Dosage: UNK UNK, QD
     Route: 058
     Dates: start: 20190514, end: 20190514
  7. DIPHTHERIA AND TETANUS TOXOIDS AND ACELLULAR PERTUSSIS ADSORBED AND IN [Concomitant]
     Active Substance: DIPHTHERIA AND TETANUS TOXOIDS AND ACELLULAR PERTUSSIS ADSORBED AND INACTIVATED POLIOVIRUS VACCINE
     Dosage: UNK UNK, QD
     Route: 030
     Dates: start: 20190411, end: 20190411
  8. LIQUOR AMMONII ANI [Concomitant]
     Dosage: UNK UNK, QD
     Route: 048
     Dates: start: 20180922, end: 20180922
  9. LATUDA [Concomitant]
     Active Substance: LURASIDONE HYDROCHLORIDE
     Indication: Bipolar disorder
     Dosage: 20 MILLIGRAM
     Route: 048
     Dates: start: 20180908, end: 20190115
  10. COLACE [Concomitant]
     Active Substance: DOCUSATE SODIUM
     Dosage: UNK UNK, QD
     Route: 048
     Dates: start: 20190411, end: 20190411
  11. CAFFEINE [Concomitant]
     Active Substance: CAFFEINE
     Dosage: UNK UNK, MONTHLY
     Route: 048
     Dates: start: 20190601, end: 20190605

REACTIONS (5)
  - Vanishing twin syndrome [Unknown]
  - Pregnancy [Unknown]
  - Gastrointestinal infection [Recovered/Resolved]
  - Nasopharyngitis [Unknown]
  - Nausea [Unknown]

NARRATIVE: CASE EVENT DATE: 20180908
